FAERS Safety Report 5597382-4 (Version None)
Quarter: 2007Q4

REPORT INFORMATION
  Report Type: 
  Country: None (occurrence: None)
  Receive Date: 20071221
  Receipt Date: 20070917
  Transmission Date: 20080405
  Serious: No
  Sender: FDA-Public Use
  Company Number: SPV1-2007-04183

PATIENT
  Age: 16 Year

DRUGS (2)
  1. VYVANSE [Suspect]
  2. ADDERALL 10 [Concomitant]

REACTIONS (2)
  - HYPERHIDROSIS [None]
  - OFF LABEL USE [None]
